FAERS Safety Report 14346205 (Version 1)
Quarter: 2018Q1

REPORT INFORMATION
  Report Type: Spontaneous
  Country: JP (occurrence: JP)
  Receive Date: 20180103
  Receipt Date: 20180103
  Transmission Date: 20180509
  Serious: Yes (Other)
  Sender: FDA-Public Use
  Company Number: JP-UCBSA-2017030297

PATIENT
  Age: 8 Decade
  Sex: Male

DRUGS (5)
  1. NEUPRO [Suspect]
     Active Substance: ROTIGOTINE
     Indication: PARKINSON^S DISEASE
     Dosage: 2 MG DAILY DOSE
     Route: 062
     Dates: start: 20161117, end: 20161227
  2. NEUPRO [Suspect]
     Active Substance: ROTIGOTINE
     Dosage: DAILY DOSE: 6 MG
     Route: 062
     Dates: start: 20170404, end: 20170718
  3. ROPINIROLE HYDROCHLORIDE. [Concomitant]
     Active Substance: ROPINIROLE HYDROCHLORIDE
     Indication: PRODUCT USED FOR UNKNOWN INDICATION
     Dosage: UNK
  4. DOPACOL [Concomitant]
     Active Substance: CARBIDOPA\LEVODOPA
     Indication: PRODUCT USED FOR UNKNOWN INDICATION
     Dosage: UNK
     Dates: start: 20161201
  5. NEUPRO [Suspect]
     Active Substance: ROTIGOTINE
     Dosage: DAILY DOSE: 4 MG
     Route: 062
     Dates: start: 20161228, end: 20170403

REACTIONS (1)
  - Dropped head syndrome [Recovering/Resolving]

NARRATIVE: CASE EVENT DATE: 201706
